FAERS Safety Report 12522092 (Version 1)
Quarter: 2016Q3

REPORT INFORMATION
  Report Type: Spontaneous
  Country: US (occurrence: US)
  Receive Date: 20160701
  Receipt Date: 20160701
  Transmission Date: 20161109
  Serious: Yes (Other)
  Sender: FDA-Public Use
  Company Number: US-SA-2016SA114890

PATIENT
  Sex: Male

DRUGS (2)
  1. LANTUS [Suspect]
     Active Substance: INSULIN GLARGINE
     Indication: DIABETES MELLITUS
     Dosage: 40-45 UNITS IN THE MORNING AND 40-45 UNITS AT NIGHT
     Route: 065
  2. SOLOSTAR [Concomitant]
     Active Substance: DEVICE
     Indication: DIABETES MELLITUS

REACTIONS (5)
  - Drug ineffective [Unknown]
  - Surgery [Unknown]
  - Blood glucose abnormal [Unknown]
  - Glycosylated haemoglobin increased [Unknown]
  - Product use issue [Unknown]

NARRATIVE: CASE EVENT DATE: 2016
